FAERS Safety Report 8030060 (Version 3)
Quarter: 2016Q4

REPORT INFORMATION
  Report Type: Report from Study
  Country: US (occurrence: US)
  Receive Date: 20110712
  Receipt Date: 20161220
  Transmission Date: 20170207
  Serious: Yes (Death, Other)
  Sender: FDA-Public Use
  Company Number: US-CELGENEUS-163-50794-11070737

PATIENT

DRUGS (4)
  1. VIDAZA [Suspect]
     Active Substance: AZACITIDINE
     Indication: MYELODYSPLASTIC SYNDROME
     Dosage: 75MG/M2
     Route: 041
  2. VIDAZA [Suspect]
     Active Substance: AZACITIDINE
     Indication: ACUTE MYELOID LEUKAEMIA
  3. VORINOSTAT [Suspect]
     Active Substance: VORINOSTAT
     Indication: ACUTE MYELOID LEUKAEMIA
  4. VORINOSTAT [Suspect]
     Active Substance: VORINOSTAT
     Indication: MYELODYSPLASTIC SYNDROME
     Dosage: 200MG
     Route: 048

REACTIONS (16)
  - Stomatitis [Unknown]
  - Muscular weakness [Unknown]
  - Diarrhoea [Unknown]
  - Opportunistic infection [Unknown]
  - Nausea [Unknown]
  - Constipation [Unknown]
  - Neoplasm malignant [Fatal]
  - Alanine aminotransferase increased [Unknown]
  - Cardiac disorder [Unknown]
  - Blood bilirubin increased [Unknown]
  - Respiratory disorder [Unknown]
  - Vomiting [Unknown]
  - Gastrointestinal toxicity [Unknown]
  - Febrile neutropenia [Unknown]
  - Rash [Unknown]
  - Fatigue [Unknown]
